FAERS Safety Report 7943414 (Version 2)
Quarter: 2012Q4

REPORT INFORMATION
  Report Type: Spontaneous
  Country: US (occurrence: None)
  Receive Date: 20110425
  Receipt Date: 20120919
  Transmission Date: 20130627
  Serious: Yes (Other)
  Sender: FDA-Public Use
  Company Number: 2011MA003662

PATIENT
  Sex: Female
  Weight: 78.93 kg

DRUGS (35)
  1. METOCLOPRAMIDE [Suspect]
     Indication: GASTROPARESIS
     Dosage: AC + HS
     Route: 048
     Dates: start: 20080603, end: 20100417
  2. METOCLOPRAMIDE [Suspect]
     Indication: ACID REFLUX
     Dosage: AC + HS
     Route: 048
     Dates: start: 20080603, end: 20100417
  3. ALPRAZOLAM [Concomitant]
  4. AMITRIPTYLINE [Concomitant]
  5. AMOXICILLIN [Concomitant]
  6. AVELOX [Concomitant]
  7. AZITHROMYCIN [Concomitant]
  8. CARISOPRODOL [Concomitant]
  9. CHANTIX [Concomitant]
  10. CIPROFLOXACIN [Concomitant]
  11. CLONAZEPAM [Concomitant]
  12. COLESTIPOL [Concomitant]
  13. COMBIVENT [Concomitant]
  14. DIOCTO [Concomitant]
  15. DRONABINOL [Concomitant]
  16. ERYTHROMYCIN [Concomitant]
  17. FLORASTOR [Concomitant]
  18. FLUCONAZOLE [Concomitant]
  19. HALOPERIDOL [Concomitant]
  20. IBUPROFEN [Concomitant]
  21. LACTULOSE [Concomitant]
  22. LYRICA [Concomitant]
  23. MARINOL [Concomitant]
  24. METHOCARBAMOL [Concomitant]
  25. MUCINEX [Concomitant]
  26. NEXIUM [Concomitant]
  27. OPANA ER [Concomitant]
  28. OXYCODONE [Concomitant]
  29. PENICILLIN [Concomitant]
  30. PROMETHAZINE [Concomitant]
  31. RANITIDINE [Concomitant]
  32. SENNA [Concomitant]
  33. SEROQUEL [Concomitant]
  34. SUCRALFATE [Concomitant]
  35. TIZANIDINE [Suspect]

REACTIONS (5)
  - Parkinson^s disease [None]
  - Convulsion [None]
  - Economic problem [None]
  - Myoclonus [None]
  - Emotional distress [None]
